FAERS Safety Report 4986597-1 (Version None)
Quarter: 2006Q2

REPORT INFORMATION
  Report Type: 
  Country: None (occurrence: None)
  Receive Date: 20060424
  Receipt Date: 20060417
  Transmission Date: 20061013
  Serious: Yes (Other)
  Sender: FDA-Public Use
  Company Number: HQWYE857118APR06

PATIENT
  Age: 45 Year
  Sex: Female
  Weight: 52.66 kg

DRUGS (2)
  1. PROTONIX [Suspect]
     Indication: GASTRIC PH DECREASED
     Dosage: 40 MG, ORAL
     Route: 048
     Dates: start: 20051229
  2. PROTONIX [Suspect]
     Indication: POSTOPERATIVE CARE
     Dosage: 40 MG, ORAL
     Route: 048
     Dates: start: 20051229

REACTIONS (6)
  - ABDOMINAL PAIN UPPER [None]
  - CONDITION AGGRAVATED [None]
  - HEPATIC CYST [None]
  - NAUSEA [None]
  - RENAL CYST [None]
  - VOMITING [None]
